FAERS Safety Report 6172883-9 (Version None)
Quarter: 2009Q2

REPORT INFORMATION
  Report Type: 
  Country: None (occurrence: None)
  Receive Date: 20090428
  Receipt Date: 20090414
  Transmission Date: 20091009
  Serious: Yes (Other)
  Sender: FDA-Public Use
  Company Number: B0571204A

PATIENT
  Age: 67 Year
  Sex: Female

DRUGS (2)
  1. DIGOXIN [Suspect]
  2. AMIODARONE HCL [Suspect]

REACTIONS (1)
  - TORSADE DE POINTES [None]
